FAERS Safety Report 9105817 (Version 2)
Quarter: 2013Q2

REPORT INFORMATION
  Report Type: Spontaneous
  Country: US (occurrence: US)
  Receive Date: 20130220
  Receipt Date: 20130528
  Transmission Date: 20140414
  Serious: No
  Sender: FDA-Public Use
  Company Number: US-PFIZER INC-2013061539

PATIENT
  Sex: Female

DRUGS (3)
  1. PREMARIN [Suspect]
     Indication: POSTMENOPAUSE
     Dosage: UNK, WEEKLY
     Route: 067
     Dates: start: 201211
  2. PREMARIN [Suspect]
     Indication: ATROPHIC VULVOVAGINITIS
  3. SYNTHROID [Concomitant]
     Indication: HYPOTHYROIDISM
     Dosage: UNK

REACTIONS (3)
  - Alopecia [Unknown]
  - Fluid retention [Unknown]
  - Abdominal pain [Unknown]
